FAERS Safety Report 7932286-0 (Version None)
Quarter: 2011Q4

REPORT INFORMATION
  Report Type: 
  Country: None (occurrence: None)
  Receive Date: 20111121
  Receipt Date: 20111116
  Transmission Date: 20120403
  Serious: Yes (Hospitalization)
  Sender: FDA-Public Use
  Company Number: FR-GILEAD-2011-0046818

PATIENT
  Sex: Female

DRUGS (5)
  1. ISENTRESS [Suspect]
     Indication: HIV INFECTION
     Dosage: 2 DF, UNK
     Route: 048
     Dates: start: 20110101
  2. PALUJECT [Concomitant]
  3. VITAMIN B6 [Concomitant]
  4. VITAMIN B1 TAB [Concomitant]
  5. TRUVADA [Suspect]
     Indication: HIV INFECTION
     Dosage: 1 DF, UNK
     Route: 048
     Dates: start: 20110101

REACTIONS (1)
  - PYRAMIDAL TRACT SYNDROME [None]
